FAERS Safety Report 8989112 (Version 1)
Quarter: 2012Q4

REPORT INFORMATION
  Report Type: Spontaneous
  Country: IT (occurrence: None)
  Receive Date: 20121219
  Receipt Date: 20121219
  Transmission Date: 20130627
  Serious: Yes (Hospitalization)
  Sender: FDA-Public Use
  Company Number: DSA_61468_2012

PATIENT
  Age: 61 Year
  Sex: Male

DRUGS (3)
  1. FLUOROURACIL (FLUOROURACIL) [Suspect]
     Indication: GASTRIC CANCER
     Dosage: df, every other week, df
  2. OXALIPLATIN (OXALIPLATIN) [Suspect]
     Indication: GASTRIC CANCER
  3. LEUCOVORIN [Suspect]
     Indication: GASTRIC CANCER

REACTIONS (6)
  - Interstitial lung disease [None]
  - Diarrhoea [None]
  - Pleural effusion [None]
  - Malignant neoplasm progression [None]
  - Gastric cancer [None]
  - Respiratory depression [None]
